FAERS Safety Report 23643341 (Version 1)
Quarter: 2024Q1

REPORT INFORMATION
  Report Type: Report from Study
  Country: PH (occurrence: PH)
  Receive Date: 20240318
  Receipt Date: 20240318
  Transmission Date: 20240410
  Serious: Yes (Death)
  Sender: FDA-Public Use
  Company Number: PH-OTSUKA-2024_006983

PATIENT
  Sex: Male

DRUGS (1)
  1. TOLVAPTAN [Suspect]
     Active Substance: TOLVAPTAN
     Indication: Product used for unknown indication
     Dosage: 0.5 DF (1/2 TABLET EVERY MONDAY AND THURSDAY ONLY)
     Route: 048

REACTIONS (3)
  - Cardiac arrest [Fatal]
  - Inappropriate schedule of product administration [Unknown]
  - Wrong technique in product usage process [Unknown]
